FAERS Safety Report 16312269 (Version 1)
Quarter: 2019Q2

REPORT INFORMATION
  Report Type: Spontaneous
  Country: US (occurrence: US)
  Receive Date: 20190515
  Receipt Date: 20190515
  Transmission Date: 20190711
  Serious: Yes (Hospitalization, Other)
  Sender: FDA-Public Use
  Company Number: US-EMCURE PHARMACEUTICALS LTD-2019-EPL-0220

PATIENT
  Age: 66 Year
  Sex: Male

DRUGS (10)
  1. PROPOFOL. [Concomitant]
     Active Substance: PROPOFOL
     Indication: INDUCTION OF ANAESTHESIA
  2. TRANEXAMIC ACID. [Suspect]
     Active Substance: TRANEXAMIC ACID
     Indication: SPINAL FUSION SURGERY
     Dosage: 1 GRAM, AFTER INDUCTION
     Route: 040
  3. DESFLURANE. [Concomitant]
     Active Substance: DESFLURANE
     Indication: GENERAL ANAESTHESIA
  4. ALBUMIN [Concomitant]
     Active Substance: ALBUMIN HUMAN
     Dosage: 500 ML OF 5 PERCENT
  5. LIDOCAINE. [Concomitant]
     Active Substance: LIDOCAINE
     Indication: INDUCTION OF ANAESTHESIA
  6. TRANEXAMIC ACID. [Suspect]
     Active Substance: TRANEXAMIC ACID
     Dosage: 1 MILLIGRAM/KILOGRAM/HOUR
  7. SUFENTANIL [Concomitant]
     Active Substance: SUFENTANIL
     Indication: GENERAL ANAESTHESIA
  8. FENTANYL. [Concomitant]
     Active Substance: FENTANYL
     Indication: INDUCTION OF ANAESTHESIA
  9. MIDAZOLAM [Concomitant]
     Active Substance: MIDAZOLAM HYDROCHLORIDE
     Indication: INDUCTION OF ANAESTHESIA
  10. LABETALOL [Concomitant]
     Active Substance: LABETALOL\LABETALOL HYDROCHLORIDE
     Indication: TACHYCARDIA

REACTIONS (2)
  - Acute myocardial infarction [Unknown]
  - Cardiac ventricular thrombosis [Unknown]
